FAERS Safety Report 4547369-5 (Version None)
Quarter: 2005Q1

REPORT INFORMATION
  Report Type: 
  Country: None (occurrence: None)
  Receive Date: 20050107
  Receipt Date: 20040928
  Transmission Date: 20050727
  Serious: Yes (Disabling)
  Sender: FDA-Public Use
  Company Number: FR-ROCHE-381737

PATIENT
  Age: 79 Year
  Sex: Female
  Weight: 70 kg

DRUGS (7)
  1. RIVOTRIL [Suspect]
     Indication: RESTLESS LEGS SYNDROME
     Dosage: CLONAZEPAM WAS PROGRESSIVELY STOPPED.
     Route: 048
     Dates: start: 20030301
  2. FUMAFER [Concomitant]
     Indication: RESTLESS LEGS SYNDROME
     Route: 048
  3. ACETAMINOPHEN [Concomitant]
  4. LANZOR [Concomitant]
     Indication: GASTRITIS
     Route: 048
  5. RYTHMOL [Concomitant]
     Route: 048
  6. COUMADIN [Concomitant]
     Indication: PHLEBITIS
     Route: 048
  7. SYMBICORT [Concomitant]
     Indication: ASTHMA
     Dosage: FORM: INHALATION SOLUTION (SPRAY).
     Route: 055

REACTIONS (2)
  - DIFFICULTY IN WALKING [None]
  - FATIGUE [None]
